FAERS Safety Report 26183337 (Version 1)
Quarter: 2025Q4

REPORT INFORMATION
  Report Type: Spontaneous
  Country: CA (occurrence: CA)
  Receive Date: 20251221
  Receipt Date: 20251221
  Transmission Date: 20260118
  Serious: Yes (Other)
  Sender: AUROBINDO
  Company Number: CA-AUROBINDO-AUR-APL-2025-063058

PATIENT
  Age: 41 Year
  Sex: Male

DRUGS (4)
  1. DEXMEDETOMIDINE HYDROCHLORIDE [Suspect]
     Active Substance: DEXMEDETOMIDINE HYDROCHLORIDE
     Indication: Depressed level of consciousness
     Dosage: 0.2 MILLIGRAM/KILOGRAM, EVERY HOUR
     Route: 065
  2. MIDAZOLAM [Concomitant]
     Active Substance: MIDAZOLAM
     Indication: Depressed level of consciousness
     Dosage: 14 MILLIGRAM, EVERY HOUR
     Route: 065
  3. DIAZEPAM [Concomitant]
     Active Substance: DIAZEPAM
     Indication: Depressed level of consciousness
     Dosage: 110 MILLIGRAM
  4. PHENOBARBITAL [Concomitant]
     Active Substance: PHENOBARBITAL
     Indication: Depressed level of consciousness
     Dosage: 260 MILLIGRAM

REACTIONS (1)
  - Drug ineffective [Unknown]
